FAERS Safety Report 13747283 (Version 1)
Quarter: 2020Q3

REPORT INFORMATION
  Report Type: Report from Study
  Country: JP (occurrence: JP)
  Receive Date: 20170712
  Receipt Date: 20170712
  Transmission Date: 20201105
  Serious: Yes (Death, Hospitalization)
  Sender: FDA-Public Use
  Company Number: JP-ASTRAZENECA-2016SE79803

PATIENT
  Age: 21385 Day
  Sex: Male

DRUGS (38)
  1. ALFACALCIDOL [Suspect]
     Active Substance: ALFACALCIDOL
     Indication: OSTEOPOROSIS
     Route: 048
     Dates: start: 20160804, end: 20160815
  2. OXINORM (JAPAN) [Concomitant]
     Active Substance: OXYCODONE HYDROCHLORIDE
     Indication: CANCER PAIN
     Dosage: 5.00 MG PRN
     Route: 048
     Dates: start: 20160628
  3. GLYCEREB [Concomitant]
     Indication: BRAIN OEDEMA
     Dosage: 200.00 ML BID
     Route: 042
     Dates: start: 20160713, end: 20160810
  4. LASIX [Concomitant]
     Active Substance: FUROSEMIDE
     Indication: PLEURAL EFFUSION
     Route: 042
     Dates: start: 20160720, end: 20160720
  5. LOCOID [Concomitant]
     Active Substance: HYDROCORTISONE BUTYRATE
     Indication: SEBORRHOEIC DERMATITIS
     Dosage: 0.10 % PRN
     Route: 003
     Dates: start: 20160712
  6. NOVAMIN (AMIKACIN SULFATE) [Concomitant]
     Active Substance: AMIKACIN SULFATE
     Indication: PROPHYLAXIS
     Route: 048
     Dates: start: 20160807, end: 20160809
  7. NEOSTELIN [Concomitant]
     Indication: DENTAL DISORDER PROPHYLAXIS
     Dosage: 0.2 %
     Route: 061
     Dates: start: 20160808
  8. BAKTAR [Concomitant]
     Active Substance: SULFAMETHOXAZOLE\TRIMETHOPRIM
     Indication: PNEUMOCYSTIS JIROVECII PNEUMONIA
     Route: 048
     Dates: start: 20160727, end: 20160801
  9. PREDNISOLONE. [Concomitant]
     Active Substance: PREDNISOLONE
     Indication: PNEUMONITIS
     Route: 048
     Dates: start: 20160803, end: 20160809
  10. OXYCODONE [Concomitant]
     Active Substance: OXYCODONE
     Indication: CANCER PAIN
     Dosage: 5.00 MG QD
     Route: 048
     Dates: start: 20160623, end: 20160805
  11. PRIMPERAN [Concomitant]
     Active Substance: METOCLOPRAMIDE HYDROCHLORIDE
     Indication: NAUSEA
     Route: 048
     Dates: start: 20160711, end: 20160711
  12. MAGNESIUM OXIDE. [Concomitant]
     Active Substance: MAGNESIUM OXIDE
     Indication: CONSTIPATION
     Dosage: 330.00 MG TID
     Route: 048
     Dates: start: 20160611, end: 20160726
  13. OXINORM (JAPAN) [Concomitant]
     Active Substance: OXYCODONE HYDROCHLORIDE
     Indication: CANCER PAIN
     Dosage: 2.50 MG PRN
     Route: 048
     Dates: start: 20160620, end: 20160627
  14. PRIMPERAN [Concomitant]
     Active Substance: METOCLOPRAMIDE HYDROCHLORIDE
     Indication: NAUSEA
     Route: 042
     Dates: start: 20160808, end: 20160808
  15. NYROZIN [Concomitant]
     Indication: NUTRITIONAL SUPPLEMENTATION
     Route: 042
     Dates: start: 20160803, end: 20160810
  16. MEDI4736 [Suspect]
     Active Substance: DURVALUMAB
     Indication: NON-SMALL CELL LUNG CANCER
     Dosage: 1000.0MG ONCE/SINGLE ADMINISTRATION
     Route: 042
     Dates: start: 20160707, end: 20160707
  17. MAGNESIUM OXIDE. [Concomitant]
     Active Substance: MAGNESIUM OXIDE
     Indication: CONSTIPATION
     Dosage: 330.0MG AS REQUIRED
     Route: 048
     Dates: start: 20160812, end: 20160821
  18. XYLOCAINE WITH EPINEPHRINE [Concomitant]
     Active Substance: EPINEPHRINE BITARTRATE\LIDOCAINE HYDROCHLORIDE
     Indication: LOCAL ANAESTHESIA
     Dosage: 7.0ML ONCE/SINGLE ADMINISTRATION
     Route: 058
     Dates: start: 20160806, end: 20160806
  19. CRAVIT [Concomitant]
     Active Substance: LEVOFLOXACIN
     Indication: PNEUMONIA
     Route: 041
     Dates: start: 20160811, end: 20160814
  20. MAGNESIUM OXIDE. [Concomitant]
     Active Substance: MAGNESIUM OXIDE
     Indication: CONSTIPATION
     Route: 048
     Dates: start: 20160727, end: 20160812
  21. OXYCODONE [Concomitant]
     Active Substance: OXYCODONE
     Indication: CANCER PAIN
     Route: 048
     Dates: start: 20160805, end: 20160826
  22. TRAVELMIN (DIPHENHYDRAMINE SALICYLATE/DIPROPHYLLINE) [Concomitant]
     Active Substance: DIPHENHYDRAMINE SALICYLATE\DYPHYLLINE
     Indication: BRAIN OEDEMA
     Route: 048
     Dates: start: 20160713, end: 20160821
  23. AMIGRANDO [Concomitant]
     Indication: NUTRITIONAL SUPPLEMENTATION
     Dosage: 500.00 ML QD
     Route: 042
     Dates: start: 20160717
  24. NOVAMIN (AMIKACIN SULFATE) [Concomitant]
     Active Substance: AMIKACIN SULFATE
     Indication: PROPHYLAXIS
     Route: 048
     Dates: start: 20160628, end: 20160723
  25. SOL?MELCORT [Concomitant]
     Active Substance: METHYLPREDNISOLONE SODIUM SUCCINATE
     Indication: PNEUMONITIS
     Route: 042
     Dates: start: 20160727, end: 20160802
  26. PREDNISOLONE. [Concomitant]
     Active Substance: PREDNISOLONE
     Indication: PNEUMONITIS
     Route: 048
     Dates: start: 20160810, end: 20160816
  27. MEPTIN AIR [Concomitant]
     Active Substance: PROCATEROL HYDROCHLORIDE
     Indication: PREMEDICATION
     Dosage: 20.0UG ONCE/SINGLE ADMINISTRATION
     Route: 055
     Dates: start: 20160810, end: 20160810
  28. OXYCODONE [Concomitant]
     Active Substance: OXYCODONE
     Indication: CANCER PAIN
     Dosage: 10.00 MG QD
     Route: 048
     Dates: start: 20160629, end: 20160805
  29. NYROZIN [Concomitant]
     Indication: NUTRITIONAL SUPPLEMENTATION
     Route: 042
     Dates: start: 20160811, end: 20160814
  30. TREMELIMUMAB. [Suspect]
     Active Substance: TREMELIMUMAB
     Indication: NON-SMALL CELL LUNG CANCER
     Route: 042
     Dates: start: 20160707, end: 20160707
  31. LOXONIN [Concomitant]
     Active Substance: LOXOPROFEN SODIUM
     Indication: CANCER PAIN
     Dosage: 100.00 MG PRN
     Route: 003
     Dates: start: 20160620
  32. PANVITAN [Concomitant]
     Indication: VITAMIN SUPPLEMENTATION
     Route: 048
     Dates: start: 20160801, end: 20160815
  33. PARIET [Concomitant]
     Active Substance: RABEPRAZOLE SODIUM
     Indication: GASTRIC ULCER
     Route: 048
     Dates: start: 20160804, end: 20160827
  34. GUAIAZULENE [Concomitant]
     Active Substance: GUAIAZULENE
     Indication: DRY SKIN PROPHYLAXIS
     Route: 002
     Dates: start: 20160806, end: 20160806
  35. BENAMBAX [Concomitant]
     Active Substance: PENTAMIDINE
     Indication: PNEUMOCYSTIS JIROVECII PNEUMONIA
     Dosage: 300.0MG ONCE/SINGLE ADMINISTRATION
     Dates: start: 20160810, end: 20160810
  36. SODIUM PICOSULFATE [Concomitant]
     Active Substance: SODIUM PICOSULFATE
     Indication: CONSTIPATION
     Dosage: 30.0DF ONCE/SINGLE ADMINISTRATION
     Route: 048
     Dates: start: 20160811, end: 20160811
  37. SENNOSIDE [Concomitant]
     Active Substance: SENNOSIDES
     Indication: CONSTIPATION
     Dosage: 24.0MG AS REQUIRED
     Route: 048
     Dates: start: 20160812, end: 20160827
  38. NEW LECICARBON [Concomitant]
     Active Substance: SODIUM BICARBONATE\SODIUM PHOSPHATE, MONOBASIC
     Indication: CONSTIPATION
     Dosage: 1 PIECE ONCE
     Route: 061
     Dates: start: 20160814, end: 20160814

REACTIONS (2)
  - Pneumonitis [Not Recovered/Not Resolved]
  - Blood calcium increased [Not Recovered/Not Resolved]

NARRATIVE: CASE EVENT DATE: 20160721
